FAERS Safety Report 7337224-X (Version None)
Quarter: 2011Q1

REPORT INFORMATION
  Report Type: 
  Country: None (occurrence: None)
  Receive Date: 20110308
  Receipt Date: 20110301
  Transmission Date: 20110831
  Serious: No
  Sender: FDA-Public Use
  Company Number: US-PFIZER INC-2011044473

PATIENT
  Sex: Female

DRUGS (3)
  1. XALATAN [Suspect]
     Dosage: UNK
  2. KETOROLAC TROMETHAMINE [Suspect]
     Dosage: UNK
  3. TIMOLOL MALEATE [Suspect]
     Dosage: UNK

REACTIONS (2)
  - SKIN IRRITATION [None]
  - EYE DISCHARGE [None]
